FAERS Safety Report 8268575-2 (Version None)
Quarter: 2012Q2

REPORT INFORMATION
  Report Type: 
  Country: None (occurrence: None)
  Receive Date: 20120409
  Receipt Date: 20120329
  Transmission Date: 20120825
  Serious: Yes (Hospitalization)
  Sender: FDA-Public Use
  Company Number: US-BAYER-2012-031679

PATIENT
  Age: 48 Year
  Sex: Female
  Weight: 109 kg

DRUGS (7)
  1. ZYRTEC [Concomitant]
     Dosage: 10 MG, UNK
  2. YAZ [Suspect]
     Indication: MENOPAUSAL SYMPTOMS
     Route: 048
  3. DYAZIDE [Concomitant]
     Indication: FLUID RETENTION
     Dosage: PRN
  4. DEXATRIM MAX [Concomitant]
     Dosage: PERIODIC OVER LAST 3 WEEKS
  5. DEXATRIM MAX [Concomitant]
  6. TRIAM CO [Concomitant]
     Indication: FLUID RETENTION
     Dosage: 37.5/25 PRN
  7. OVER THE COUNTER WATER PILLS [Concomitant]

REACTIONS (2)
  - PULMONARY EMBOLISM [None]
  - DEEP VEIN THROMBOSIS [None]
